FAERS Safety Report 17896951 (Version 2)
Quarter: 2020Q3

REPORT INFORMATION
  Report Type: Spontaneous
  Country: IL (occurrence: IL)
  Receive Date: 20200615
  Receipt Date: 20200911
  Transmission Date: 20201103
  Serious: Yes (Death)
  Sender: FDA-Public Use
  Company Number: IL-ASTRAZENECA-2020SE76588

PATIENT
  Sex: Female

DRUGS (1)
  1. IMFINZI [Suspect]
     Active Substance: DURVALUMAB
     Indication: NON-SMALL CELL LUNG CANCER STAGE III
     Route: 042

REACTIONS (2)
  - Arterial haemorrhage [Fatal]
  - Loss of consciousness [Fatal]
